FAERS Safety Report 5170632-4 (Version None)
Quarter: 2006Q4

REPORT INFORMATION
  Report Type: 
  Country: None (occurrence: None)
  Receive Date: 20061205
  Receipt Date: 20061120
  Transmission Date: 20070319
  Serious: Yes (Life-Threatening, Hospitalization)
  Sender: FDA-Public Use
  Company Number: 2006144616

PATIENT
  Age: 66 Year
  Sex: Female
  Weight: 72 kg

DRUGS (6)
  1. SOLU-MODERIN (METHYLPREDNISOLONE SODIUM SUCCINATE) [Suspect]
     Dosage: 125 MG, INTRAVENOUS
     Route: 042
     Dates: start: 20060919, end: 20060919
  2. OXALIPLATIN [Suspect]
     Indication: COLON CANCER
     Dosage: 120 MG, INTRAVENOUS
     Route: 042
     Dates: start: 20060919, end: 20060919
  3. FOLINIC ACID (FOLINIC ACID) [Suspect]
     Indication: COLON CANCER
     Dosage: 530 MG, INTRAVENOUS
     Route: 042
     Dates: start: 20060919, end: 20060919
  4. ONDANSETRON HYDROCHLORIDE [Suspect]
     Indication: PROPHYLAXIS
     Dosage: 8 MG, INTRAVENOUS
     Route: 042
     Dates: start: 20060919, end: 20060919
  5. FLUOROURACIL [Concomitant]
  6. PAROXETINE HCL [Concomitant]

REACTIONS (1)
  - RESPIRATORY DEPRESSION [None]
